FAERS Safety Report 4282953-8 (Version None)
Quarter: 2004Q1

REPORT INFORMATION
  Report Type: 
  Country: None (occurrence: None)
  Receive Date: 20040130
  Receipt Date: 20040121
  Transmission Date: 20041129
  Serious: Yes (Hospitalization, Other)
  Sender: FDA-Public Use
  Company Number: JP-BRISTOL-MYERS SQUIBB COMPANY-12490322

PATIENT
  Age: 27 Year
  Sex: Female

DRUGS (10)
  1. GATIFLO [Suspect]
     Indication: BRONCHITIS ACUTE
     Route: 048
     Dates: start: 20031226, end: 20031228
  2. CEFOTIAM HYDROCHLORIDE [Concomitant]
     Indication: BRONCHITIS ACUTE
     Route: 042
     Dates: start: 20031218, end: 20031225
  3. GANATON [Concomitant]
     Route: 048
     Dates: start: 20031218
  4. BIOFERMIN R [Concomitant]
     Route: 048
     Dates: start: 20031218, end: 20031230
  5. UNIPHYL [Concomitant]
     Route: 048
     Dates: start: 20031218
  6. PARIET [Concomitant]
     Route: 048
     Dates: start: 20031218
  7. SINGULAIR [Concomitant]
     Route: 048
     Dates: start: 20031218, end: 20040107
  8. FLUTICASONE PROPIONATE [Concomitant]
     Dosage: DISKUS 200
     Route: 055
     Dates: start: 20031225
  9. MUCOTRON [Concomitant]
     Route: 048
     Dates: start: 20031218
  10. PREDONINE [Concomitant]
     Dosage: 5 MG 27-DEC-2003; 20 MG 28-DEC-2003; 15 MG 30-DEC-2003
     Route: 048
     Dates: start: 20031227, end: 20031230

REACTIONS (1)
  - HYPOGLYCAEMIA [None]
